FAERS Safety Report 8376757-4 (Version None)
Quarter: 2012Q2

REPORT INFORMATION
  Report Type: 
  Country: None (occurrence: None)
  Receive Date: 20120522
  Receipt Date: 20120207
  Transmission Date: 20120825
  Serious: No
  Sender: FDA-Public Use
  Company Number: US-BRISTOL-MYERS SQUIBB COMPANY-16298358

PATIENT
  Sex: Female

DRUGS (2)
  1. VICTOZA [Suspect]
  2. ONGLYZA [Suspect]
     Route: 048

REACTIONS (1)
  - MALAISE [None]
